FAERS Safety Report 8042647-X (Version None)
Quarter: 2012Q1

REPORT INFORMATION
  Report Type: 
  Country: None (occurrence: None)
  Receive Date: 20120112
  Receipt Date: 20111229
  Transmission Date: 20120608
  Serious: Yes (Hospitalization)
  Sender: FDA-Public Use
  Company Number: FR-CELGENEUS-056-50794-10123278

PATIENT
  Sex: Male
  Weight: 60 kg

DRUGS (12)
  1. GRANOCYTE [Concomitant]
     Route: 058
     Dates: start: 20110108, end: 20110116
  2. VIDAZA [Suspect]
     Route: 058
     Dates: start: 20110203, end: 20110204
  3. DUPHALAC [Concomitant]
     Indication: CONSTIPATION
     Route: 048
     Dates: start: 20101230
  4. HEXAQUINE [Concomitant]
     Dosage: 1
     Route: 048
     Dates: start: 20090502, end: 20101224
  5. NEORECORMON [Suspect]
     Dosage: 60000 IU (INTERNATIONAL UNIT)
     Route: 058
     Dates: start: 20100202
  6. LMWH [Concomitant]
     Indication: PHLEBITIS
  7. GRANOCYTE [Concomitant]
     Indication: NEUTROPENIA
     Dosage: 3 IU (INTERNATIONAL UNIT)
     Route: 058
     Dates: start: 20101212, end: 20101218
  8. EXJADE [Concomitant]
     Indication: IRON OVERLOAD
     Dosage: 2.5 GRAM
     Route: 048
     Dates: start: 20080530
  9. NEUPOGEN [Concomitant]
     Indication: NEUTROPENIA
     Route: 065
  10. VIDAZA [Suspect]
     Route: 058
     Dates: start: 20100208, end: 20101210
  11. IMOVANE [Concomitant]
     Indication: INSOMNIA
     Dosage: 7.5 MILLIGRAM
     Route: 048
     Dates: start: 20101224
  12. NEXIUM [Concomitant]
     Dosage: 20 MILLIGRAM
     Route: 048
     Dates: start: 20100823

REACTIONS (3)
  - STAPHYLOCOCCAL SEPSIS [None]
  - ERYSIPELAS [None]
  - HAEMATOMA [None]
